FAERS Safety Report 17035533 (Version 1)
Quarter: 2019Q4

REPORT INFORMATION
  Report Type: Report from Study
  Country: NL (occurrence: NL)
  Receive Date: 20191115
  Receipt Date: 20191115
  Transmission Date: 20200122
  Serious: Yes (Other)
  Sender: FDA-Public Use
  Company Number: NL-AMGEN-NLDSL2019070207

PATIENT
  Age: 72 Year
  Sex: Male

DRUGS (12)
  1. CALCIUM CARBONATE W/COLECALCIFEROL [Concomitant]
     Active Substance: CALCIUM CARBONATE\CHOLECALCIFEROL
     Dosage: 1.25G/800IE (500MG CA), QD
  2. LISINOPRIL. [Concomitant]
     Active Substance: LISINOPRIL
     Dosage: 20 MILLIGRAM, 2XD 1T
  3. BICALUTAMIDE. [Concomitant]
     Active Substance: BICALUTAMIDE
     Dosage: 50 MILLIGRAM, QD
  4. XGEVA [Suspect]
     Active Substance: DENOSUMAB
     Indication: PROPHYLAXIS
     Dosage: 120/70MILLIGRAM/MILLILITRE, Q4WK/FLACON 1,7ML
     Route: 065
     Dates: start: 20190501
  5. MESALAZINE [Concomitant]
     Active Substance: MESALAMINE
     Dosage: 400 MILLIGRAM, 2XD 1T
  6. CLINDAMYCINE [CLINDAMYCIN] [Concomitant]
     Active Substance: CLINDAMYCIN
     Dosage: 300 MILLIGRAM, 4D1C
  7. GLICLAZIDE [Concomitant]
     Active Substance: GLICLAZIDE
     Dosage: 80 MILLIGRAM, QD
  8. METFORMINE [METFORMIN] [Concomitant]
     Active Substance: METFORMIN HYDROCHLORIDE
     Dosage: 500 MILLIGRAM, QD
  9. OXYCODON [Concomitant]
     Active Substance: OXYCODONE
     Dosage: 5 MILLIGRAM, 2XD 1T
  10. FLUTICASONE FUROATE [Concomitant]
     Active Substance: FLUTICASONE FUROATE
     Dosage: 7.5UG/DO FL 120DO, 1D2PF
  11. AZATHIOPRINE. [Concomitant]
     Active Substance: AZATHIOPRINE
     Dosage: 25 MILLIGRAM, QD
  12. PRAVASTATINE [PRAVASTATIN] [Concomitant]
     Active Substance: PRAVASTATIN
     Dosage: 40 MILLIGRAM, QD

REACTIONS (4)
  - Post procedural inflammation [Unknown]
  - Jaw disorder [Unknown]
  - Tooth extraction [Unknown]
  - Endodontic procedure [Unknown]

NARRATIVE: CASE EVENT DATE: 201904
